FAERS Safety Report 14890418 (Version 3)
Quarter: 2018Q2

REPORT INFORMATION
  Report Type: Spontaneous
  Country: US (occurrence: US)
  Receive Date: 20180514
  Receipt Date: 20180626
  Transmission Date: 20180711
  Serious: Yes (Other)
  Sender: FDA-Public Use
  Company Number: US-OTSUKA-2018_011730

PATIENT
  Age: 46 Year

DRUGS (3)
  1. ARIPIPRAZOLE. [Suspect]
     Active Substance: ARIPIPRAZOLE
     Indication: PRODUCT USED FOR UNKNOWN INDICATION
     Dosage: 20 MG, UNK
     Route: 065
  2. ABILIFY MAINTENA [Suspect]
     Active Substance: ARIPIPRAZOLE
     Dosage: 400 MG, UNK
     Route: 030
  3. ABILIFY MAINTENA [Suspect]
     Active Substance: ARIPIPRAZOLE
     Indication: PRODUCT USED FOR UNKNOWN INDICATION
     Dosage: 400 MG, UNK
     Route: 058

REACTIONS (8)
  - Hyperhidrosis [Unknown]
  - Haemodialysis [Unknown]
  - Aggression [Unknown]
  - Psychiatric decompensation [Unknown]
  - Agitation [Unknown]
  - Injection site induration [Unknown]
  - Blood pressure systolic increased [Unknown]
  - Incorrect route of drug administration [Unknown]
